FAERS Safety Report 4918321-2 (Version None)
Quarter: 2006Q1

REPORT INFORMATION
  Report Type: 
  Country: None (occurrence: None)
  Receive Date: 20060217
  Receipt Date: 20060217
  Transmission Date: 20060701
  Serious: Yes (Other)
  Sender: FDA-Public Use
  Company Number: None

PATIENT
  Age: 69 Year
  Sex: Female
  Weight: 44.9061 kg

DRUGS (1)
  1. PROLIXIN [Suspect]
     Indication: DEPRESSION
     Dosage: ^VARIED^ 3-4 X A DAY ORAL
     Route: 048
     Dates: start: 20030101

REACTIONS (7)
  - MOUTH ULCERATION [None]
  - ORAL DISCOMFORT [None]
  - ORAL INTAKE REDUCED [None]
  - TOOTH DISORDER [None]
  - TOOTH LOSS [None]
  - VOMITING [None]
  - WEIGHT DECREASED [None]
